FAERS Safety Report 5022667-X (Version None)
Quarter: 2006Q2

REPORT INFORMATION
  Report Type: 
  Country: None (occurrence: None)
  Receive Date: 20060605
  Receipt Date: 20060519
  Transmission Date: 20061013
  Serious: Yes (Death)
  Sender: FDA-Public Use
  Company Number: GR200604004426

PATIENT
  Age: 57 Year
  Sex: Male
  Weight: 57.5 kg

DRUGS (3)
  1. OLANZAPINE [Suspect]
     Indication: BIPOLAR DISORDER
     Dosage: 15 MG, DAILY (1/D), ORAL
     Route: 048
     Dates: start: 20031002, end: 20040422
  2. PAROXETINE HCL [Concomitant]
  3. LORAZEPAM [Concomitant]

REACTIONS (4)
  - COMPLETED SUICIDE [None]
  - FALL [None]
  - STRESS [None]
  - SUICIDAL IDEATION [None]
